FAERS Safety Report 9803704 (Version 1)
Quarter: 2014Q1

REPORT INFORMATION
  Report Type: Spontaneous
  Country: US (occurrence: US)
  Receive Date: 20140108
  Receipt Date: 20140108
  Transmission Date: 20141002
  Serious: No
  Sender: FDA-Public Use
  Company Number: US-GLAXOSMITHKLINE-A1025221A

PATIENT
  Sex: Female

DRUGS (2)
  1. LOVAZA [Suspect]
     Route: 048
  2. UNKNOWN SUPPLEMENT [Concomitant]

REACTIONS (1)
  - Urticaria [Unknown]
